FAERS Safety Report 15565705 (Version 1)
Quarter: 2018Q4

REPORT INFORMATION
  Report Type: Spontaneous
  Country: CA (occurrence: CA)
  Receive Date: 20181030
  Receipt Date: 20181030
  Transmission Date: 20190205
  Serious: Yes (Other)
  Sender: FDA-Public Use
  Company Number: CA-BAUSCH-BL-2018-029648

PATIENT
  Age: 67 Year
  Sex: Female

DRUGS (1)
  1. VISUDYNE [Suspect]
     Active Substance: VERTEPORFIN
     Indication: NEOVASCULAR AGE-RELATED MACULAR DEGENERATION
     Route: 042

REACTIONS (2)
  - Maculopathy [Recovered/Resolved]
  - Subretinal fluid [Recovered/Resolved]
